FAERS Safety Report 21288935 (Version 1)
Quarter: 2022Q3

REPORT INFORMATION
  Report Type: Spontaneous
  Country: US (occurrence: US)
  Receive Date: 20220902
  Receipt Date: 20220902
  Transmission Date: 20221027
  Serious: No
  Sender: FDA-Public Use
  Company Number: US-ABBVIE-22K-163-4389051-00

PATIENT
  Sex: Female

DRUGS (1)
  1. RINVOQ [Suspect]
     Active Substance: UPADACITINIB
     Indication: Psoriatic arthropathy
     Route: 048

REACTIONS (6)
  - Gait disturbance [Unknown]
  - Abdominal discomfort [Unknown]
  - Crohn^s disease [Unknown]
  - Arthralgia [Unknown]
  - Bone pain [Unknown]
  - Frequent bowel movements [Unknown]
